FAERS Safety Report 10374751 (Version 1)
Quarter: 2014Q1

REPORT INFORMATION
  Report Type: Spontaneous
  Country: US (occurrence: None)
  Receive Date: 20140306
  Receipt Date: 20140306
  Transmission Date: 20141002
  Serious: Yes (Hospitalization, Other)
  Sender: FDA-Public Use
  Company Number: 163-21880-13063547

PATIENT
  Age: 54 Year
  Sex: Male
  Weight: 85.7 kg

DRUGS (3)
  1. REVLIMID [Suspect]
     Indication: CHRONIC LYMPHOCYTIC LEUKAEMIA
     Dosage: 21 IN 28 D
     Route: 048
     Dates: start: 201304
  2. SYMBICORT (SYMBICORT TURBUHALER ^DRACO^) [Concomitant]
  3. PROAIR HFA (SALBUTAMOL SULFATE) [Concomitant]

REACTIONS (3)
  - Infection [None]
  - Fatigue [None]
  - Muscle spasms [None]
